FAERS Safety Report 5450017-3 (Version None)
Quarter: 2007Q3

REPORT INFORMATION
  Report Type: 
  Country: None (occurrence: None)
  Receive Date: 20070912
  Receipt Date: 20070904
  Transmission Date: 20080115
  Serious: Yes (Hospitalization, Other)
  Sender: FDA-Public Use
  Company Number: US-ABBOTT-07P-163-0416183-00

PATIENT
  Sex: Male
  Weight: 90.8 kg

DRUGS (2)
  1. HUMIRA [Suspect]
     Indication: RHEUMATOID ARTHRITIS
     Route: 058
     Dates: start: 20061101, end: 20070501
  2. HUMIRA [Suspect]
     Dates: start: 20070902

REACTIONS (3)
  - CORONARY ARTERY DISEASE [None]
  - INJECTION SITE IRRITATION [None]
  - MITRAL VALVE DISEASE [None]
